FAERS Safety Report 11866608 (Version 1)
Quarter: 2015Q4

REPORT INFORMATION
  Report Type: Spontaneous
  Country: US (occurrence: US)
  Receive Date: 20151224
  Receipt Date: 20151224
  Transmission Date: 20160305
  Serious: Yes (Hospitalization, Other)
  Sender: FDA-Public Use
  Company Number: US-PFIZER INC-2015344779

PATIENT
  Age: 70 Year
  Sex: Male
  Weight: 68 kg

DRUGS (3)
  1. VFEND [Suspect]
     Active Substance: VORICONAZOLE
     Indication: PROPHYLAXIS
  2. VFEND [Suspect]
     Active Substance: VORICONAZOLE
     Indication: MANTLE CELL LYMPHOMA
     Dosage: 200 MG, 2X/DAY
  3. METFORMIN [Concomitant]
     Active Substance: METFORMIN HYDROCHLORIDE
     Dosage: 250 MG, AS NEEDED (500 MG SPLIT INTO HALF)

REACTIONS (8)
  - Platelet count decreased [Unknown]
  - Neoplasm malignant [Unknown]
  - Gait disturbance [Unknown]
  - Weight decreased [Unknown]
  - Dysphonia [Unknown]
  - Localised infection [Unknown]
  - Pyrexia [Unknown]
  - Myelodysplastic syndrome [Unknown]
